FAERS Safety Report 10505026 (Version 2)
Quarter: 2014Q4

REPORT INFORMATION
  Report Type: Spontaneous
  Country: IT (occurrence: IT)
  Receive Date: 20141008
  Receipt Date: 20141008
  Transmission Date: 20150528
  Serious: Yes (Death, Life-Threatening)
  Sender: FDA-Public Use
  Company Number: IT-SA-2014SA102384

PATIENT
  Age: 4 Year
  Sex: Male

DRUGS (8)
  1. CORTICOSTEROID NOS [Concomitant]
     Active Substance: CORTICOSTEROID NOS
     Indication: PREMEDICATION
  2. RITUXIMAB [Concomitant]
     Active Substance: RITUXIMAB
     Indication: IMMUNE ENHANCEMENT THERAPY
     Route: 042
  3. MYOZYME [Suspect]
     Active Substance: ALGLUCOSIDASE ALFA
     Indication: GLYCOGEN STORAGE DISEASE TYPE II
     Route: 042
     Dates: start: 2010
  4. NSAID^S [Concomitant]
     Active Substance: UNSPECIFIED INGREDIENT
     Indication: PREMEDICATION
  5. MYOZYME [Suspect]
     Active Substance: ALGLUCOSIDASE ALFA
     Indication: GLYCOGEN STORAGE DISEASE TYPE II
     Dosage: FOR 2 TIMES
     Route: 042
  6. MYOZYME [Suspect]
     Active Substance: ALGLUCOSIDASE ALFA
     Indication: GLYCOGEN STORAGE DISEASE TYPE II
     Route: 042
  7. MYOZYME [Suspect]
     Active Substance: ALGLUCOSIDASE ALFA
     Indication: GLYCOGEN STORAGE DISEASE TYPE II
     Dosage: ERT DISCONTINUED AFTER 20 WEEKS OF TREATMENT
     Route: 042
  8. MYOZYME [Suspect]
     Active Substance: ALGLUCOSIDASE ALFA
     Indication: GLYCOGEN STORAGE DISEASE TYPE II
     Route: 042

REACTIONS (9)
  - Infusion related reaction [Unknown]
  - Cyanosis [Unknown]
  - Wheezing [Unknown]
  - Pyrexia [Unknown]
  - Cardiac arrest [Fatal]
  - Heart rate irregular [Unknown]
  - Hypotension [Unknown]
  - Oxygen saturation decreased [Unknown]
  - Rash [Unknown]

NARRATIVE: CASE EVENT DATE: 201409
